FAERS Safety Report 9936715 (Version 2)
Quarter: 2014Q2

REPORT INFORMATION
  Report Type: Spontaneous
  Country: US (occurrence: US)
  Receive Date: 20140228
  Receipt Date: 20140402
  Transmission Date: 20141212
  Serious: No
  Sender: FDA-Public Use
  Company Number: US-TEVA-463191USA

PATIENT
  Age: 60 Year
  Sex: Female
  Weight: 66.74 kg

DRUGS (6)
  1. TREANDA [Suspect]
     Indication: HAIRY CELL LEUKAEMIA
     Dates: start: 20140212
  2. MULTIVITAMINS [Concomitant]
  3. CALCIUM [Concomitant]
  4. VITAMIN D [Concomitant]
  5. DAPSONE [Concomitant]
     Route: 048
  6. HORMONES NOS [Concomitant]

REACTIONS (4)
  - Rash erythematous [Recovered/Resolved]
  - Pyrexia [Not Recovered/Not Resolved]
  - Flushing [Not Recovered/Not Resolved]
  - Nausea [Not Recovered/Not Resolved]
